FAERS Safety Report 12375457 (Version 3)
Quarter: 2016Q2

REPORT INFORMATION
  Report Type: Spontaneous
  Country: IL (occurrence: IL)
  Receive Date: 20160517
  Receipt Date: 20160526
  Transmission Date: 20160815
  Serious: Yes (Death, Disabling, Other)
  Sender: FDA-Public Use
  Company Number: IL-009507513-1605ISR004875

PATIENT
  Age: 49 Year
  Sex: Male

DRUGS (1)
  1. PROPECIA [Suspect]
     Active Substance: FINASTERIDE
     Indication: ALOPECIA
     Dosage: UNK
     Route: 048
     Dates: start: 201508

REACTIONS (8)
  - Insomnia [Not Recovered/Not Resolved]
  - Drug withdrawal syndrome [Unknown]
  - Completed suicide [Fatal]
  - Anxiety [Not Recovered/Not Resolved]
  - Fatigue [Unknown]
  - Mental disorder [Unknown]
  - Activities of daily living impaired [Unknown]
  - Insomnia [Unknown]

NARRATIVE: CASE EVENT DATE: 2015
